FAERS Safety Report 7409664-1 (Version None)
Quarter: 2011Q2

REPORT INFORMATION
  Report Type: 
  Country: None (occurrence: None)
  Receive Date: 20110412
  Receipt Date: 20110331
  Transmission Date: 20111010
  Serious: Yes (Other)
  Sender: FDA-Public Use
  Company Number: PHHY2011FR26874

PATIENT
  Age: 58 Year
  Sex: Male

DRUGS (5)
  1. LEPONEX [Suspect]
     Indication: SCHIZOPHRENIA
     Dosage: 400 MG
     Dates: start: 20080101
  2. TRANXENE [Concomitant]
  3. BELLADONNA ALKALOIDS [Concomitant]
     Indication: SALIVARY HYPERSECRETION
  4. ATHYMIL [Concomitant]
     Dosage: 10 MG
  5. TERCIAN [Concomitant]

REACTIONS (8)
  - CARDIOMYOPATHY [None]
  - TACHYCARDIA [None]
  - BUNDLE BRANCH BLOCK [None]
  - SUDDEN HEARING LOSS [None]
  - LUNG DISORDER [None]
  - CARDIOMEGALY [None]
  - COUGH [None]
  - MALAISE [None]
